FAERS Safety Report 25387887 (Version 1)
Quarter: 2025Q2

REPORT INFORMATION
  Report Type: Spontaneous
  Country: ES (occurrence: ES)
  Receive Date: 20250603
  Receipt Date: 20250603
  Transmission Date: 20250717
  Serious: Yes (Hospitalization)
  Sender: TEVA
  Company Number: ES-TEVA-VS-3336544

PATIENT
  Age: 77 Year
  Sex: Male

DRUGS (3)
  1. MOXIFLOXACIN [Suspect]
     Active Substance: MOXIFLOXACIN
     Indication: Respiratory tract infection
     Route: 065
  2. SIMVASTATIN [Concomitant]
     Active Substance: SIMVASTATIN
     Indication: Dyslipidaemia
  3. CARBOCYSTEINE [Concomitant]
     Active Substance: CARBOCYSTEINE
     Indication: Chronic obstructive pulmonary disease

REACTIONS (3)
  - Drug-induced liver injury [Unknown]
  - Drug reaction with eosinophilia and systemic symptoms [Unknown]
  - Mixed liver injury [Unknown]
